FAERS Safety Report 8437949-9 (Version None)
Quarter: 2012Q2

REPORT INFORMATION
  Report Type: 
  Country: None (occurrence: None)
  Receive Date: 20120614
  Receipt Date: 20120523
  Transmission Date: 20120825
  Serious: No
  Sender: FDA-Public Use
  Company Number: US-AMGEN-USASP2012032541

PATIENT
  Sex: Female

DRUGS (5)
  1. PROLIA [Suspect]
  2. PRAVASTATIN [Concomitant]
  3. PROLIA [Suspect]
     Indication: OSTEOPOROSIS POSTMENOPAUSAL
     Dosage: UNK
  4. VICODIN [Concomitant]
  5. REQUIP [Concomitant]

REACTIONS (6)
  - HEADACHE [None]
  - MALAISE [None]
  - NAUSEA [None]
  - PRURITUS [None]
  - INSOMNIA [None]
  - RESTLESS LEGS SYNDROME [None]
